FAERS Safety Report 9365014 (Version 1)
Quarter: 2013Q2

REPORT INFORMATION
  Report Type: Spontaneous
  Country: US (occurrence: US)
  Receive Date: 20130624
  Receipt Date: 20130624
  Transmission Date: 20140414
  Serious: No
  Sender: FDA-Public Use
  Company Number: US-PFIZER INC-2013186292

PATIENT
  Age: 61 Year
  Sex: Female

DRUGS (2)
  1. HYDROCORTISONE [Suspect]
  2. CRESTOR [Suspect]

REACTIONS (1)
  - Drug hypersensitivity [Unknown]
